FAERS Safety Report 20218030 (Version 3)
Quarter: 2022Q1

REPORT INFORMATION
  Report Type: Report from Study
  Country: JP (occurrence: JP)
  Receive Date: 20211222
  Receipt Date: 20220118
  Transmission Date: 20220424
  Serious: Yes (Death, Hospitalization, Other)
  Sender: FDA-Public Use
  Company Number: JP-NOVARTISPH-NVSJ2021JP021140

PATIENT
  Age: 66 Year
  Sex: Male
  Weight: 53.1 kg

DRUGS (4)
  1. TAFINLAR [Suspect]
     Active Substance: DABRAFENIB MESYLATE
     Indication: Thyroid cancer
     Dosage: 150 MG, BID
     Route: 048
     Dates: start: 20201222, end: 20210506
  2. MEKINIST [Suspect]
     Active Substance: TRAMETINIB DIMETHYL SULFOXIDE
     Indication: Thyroid cancer
     Dosage: 2 MG, QD
     Route: 048
     Dates: start: 20201222, end: 20210506
  3. LEVOTHYROXINE [Concomitant]
     Active Substance: LEVOTHYROXINE
     Indication: Hypothyroidism
     Dosage: 200 UG, QD
     Route: 048
     Dates: start: 201904, end: 20210528
  4. ALFAROL [Concomitant]
     Active Substance: ALFACALCIDOL
     Indication: Hypocalcaemia
     Dosage: 3 UG, QD
     Route: 048
     Dates: start: 201904, end: 20210528

REACTIONS (7)
  - Malignant pleural effusion [Fatal]
  - Pleural effusion [Fatal]
  - Asthenia [Fatal]
  - General physical health deterioration [Fatal]
  - Thyroid cancer [Fatal]
  - Malignant neoplasm progression [Fatal]
  - Pneumothorax [Recovering/Resolving]

NARRATIVE: CASE EVENT DATE: 20210407
